FAERS Safety Report 9236525 (Version 5)
Quarter: 2015Q2

REPORT INFORMATION
  Report Type: Spontaneous
  Country: US (occurrence: US)
  Receive Date: 20130417
  Receipt Date: 20150525
  Transmission Date: 20150821
  Serious: Yes (Hospitalization)
  Sender: FDA-Public Use
  Company Number: US-JNJFOC-20130404492

PATIENT
  Age: 76 Year
  Sex: Male
  Weight: 89.81 kg

DRUGS (7)
  1. XARELTO [Suspect]
     Active Substance: RIVAROXABAN
     Indication: ATRIAL FIBRILLATION
     Dosage: FIRST DOSE AT 5:00PM??LAST DOSE AT 5:36 PM
     Route: 048
     Dates: start: 20130320, end: 20130325
  2. MULTIVITAMINS [Concomitant]
     Active Substance: VITAMINS
     Dosage: ONE TABLET DAILY
     Route: 048
     Dates: start: 20130326
  3. METOPROLOL [Concomitant]
     Active Substance: METOPROLOL
     Route: 048
     Dates: start: 20130326
  4. DIGOXIN. [Concomitant]
     Active Substance: DIGOXIN
     Route: 048
     Dates: start: 20130326
  5. ENBREL [Concomitant]
     Active Substance: ETANERCEPT
     Route: 030
     Dates: start: 20130326
  6. XARELTO [Suspect]
     Active Substance: RIVAROXABAN
     Indication: CEREBROVASCULAR ACCIDENT PROPHYLAXIS
     Dosage: FIRST DOSE AT 5:00PM??LAST DOSE AT 5:36 PM
     Route: 048
     Dates: start: 20130320, end: 20130325
  7. METHOTREXATE [Concomitant]
     Active Substance: METHOTREXATE
     Route: 048
     Dates: start: 20130326

REACTIONS (1)
  - Rectal haemorrhage [Recovered/Resolved]

NARRATIVE: CASE EVENT DATE: 20130325
